FAERS Safety Report 8773110 (Version 2)
Quarter: 2013Q1

REPORT INFORMATION
  Report Type: Spontaneous
  Country: GB (occurrence: GB)
  Receive Date: 20120908
  Receipt Date: 20130221
  Transmission Date: 20140127
  Serious: Yes (Hospitalization, Other)
  Sender: FDA-Public Use
  Company Number: GB-TEVA-351762ISR

PATIENT
  Age: 51 Year
  Sex: Male

DRUGS (4)
  1. MIRTAZAPINE [Suspect]
     Indication: DEPRESSION
     Dosage: 30 MG, UNK
     Route: 048
     Dates: start: 20120519
  2. GLIMEPIRIDE [Concomitant]
  3. METFORMIN [Concomitant]
  4. SIMVASTATIN [Concomitant]

REACTIONS (9)
  - Agitation [Recovered/Resolved]
  - CSF protein increased [Recovered/Resolved]
  - Confusional state [Recovered/Resolved]
  - Blood creatine phosphokinase increased [Recovered/Resolved]
  - Encephalitis [Recovered/Resolved]
  - Encephalopathy [Recovered/Resolved]
  - Blood lactic acid increased [Recovered/Resolved]
  - Neuroleptic malignant syndrome [Recovered/Resolved]
  - Convulsion [Recovered/Resolved]
